FAERS Safety Report 4725783-2 (Version None)
Quarter: 2005Q3

REPORT INFORMATION
  Report Type: 
  Country: None (occurrence: None)
  Receive Date: 20050722
  Receipt Date: 20050722
  Transmission Date: 20060218
  Serious: Yes (Hospitalization)
  Sender: FDA-Public Use
  Company Number: None

PATIENT
  Age: 36 Year
  Sex: Male

DRUGS (1)
  1. BLEOMYCIN [Suspect]
     Indication: HODGKIN'S DISEASE
     Dosage: 10 UNITS/M2   INTRAVENOUS
     Route: 042

REACTIONS (10)
  - COUGH [None]
  - DYSPNOEA [None]
  - HEADACHE [None]
  - HEART RATE INCREASED [None]
  - LUNG INJURY [None]
  - MALAISE [None]
  - OXYGEN SATURATION DECREASED [None]
  - PULMONARY EMBOLISM [None]
  - PYREXIA [None]
  - RESPIRATORY RATE INCREASED [None]
